FAERS Safety Report 4545008-0 (Version None)
Quarter: 2005Q1

REPORT INFORMATION
  Report Type: 
  Country: None (occurrence: None)
  Receive Date: 20050105
  Receipt Date: 20041112
  Transmission Date: 20050727
  Serious: Yes (Other)
  Sender: FDA-Public Use
  Company Number: 211-001-01

PATIENT
  Age: 64 Year
  Sex: Female

DRUGS (6)
  1. TOPOTECAN [Suspect]
     Indication: OVARIAN CANCER
     Dosage: 1.2MGM2 PER DAY
     Route: 042
     Dates: start: 20041021, end: 20041025
  2. FILGRASTIM [Concomitant]
  3. RINGER'S [Concomitant]
  4. CARBENIN [Concomitant]
  5. BUMINATE [Concomitant]
  6. LASIX [Concomitant]

REACTIONS (14)
  - ANAEMIA [None]
  - BLOOD CREATININE INCREASED [None]
  - BLOOD UREA INCREASED [None]
  - BONE MARROW DEPRESSION [None]
  - DEHYDRATION [None]
  - HYDRONEPHROSIS [None]
  - HYPOALBUMINAEMIA [None]
  - HYPOPROTEINAEMIA [None]
  - LYMPHADENOPATHY [None]
  - NEOPLASM PROGRESSION [None]
  - NEOPLASM RECURRENCE [None]
  - OEDEMA [None]
  - RENAL FAILURE ACUTE [None]
  - URINE OUTPUT DECREASED [None]
